FAERS Safety Report 4589692-4 (Version None)
Quarter: 2005Q1

REPORT INFORMATION
  Report Type: 
  Country: None (occurrence: None)
  Receive Date: 20050223
  Receipt Date: 20020222
  Transmission Date: 20050727
  Serious: Yes (Hospitalization, Disabling, Other)
  Sender: FDA-Public Use
  Company Number: US-MERCK-0202USA02375

PATIENT
  Age: 40 Year
  Sex: Female
  Weight: 73 kg

DRUGS (3)
  1. VIOXX [Suspect]
     Indication: TOOTHACHE
     Route: 048
     Dates: start: 20010515, end: 20010521
  2. VIOXX [Suspect]
     Indication: POST PROCEDURAL PAIN
     Route: 048
     Dates: start: 20010515, end: 20010521
  3. ALLEGRA [Concomitant]
     Route: 065

REACTIONS (42)
  - ABDOMINAL PAIN [None]
  - ANTIPHOSPHOLIPID SYNDROME [None]
  - BACK DISORDER [None]
  - BLOOD CHOLESTEROL INCREASED [None]
  - BLOOD IMMUNOGLOBULIN M INCREASED [None]
  - CARDIOLIPIN ANTIBODY POSITIVE [None]
  - CEREBROVASCULAR ACCIDENT [None]
  - CHOLECYSTITIS [None]
  - CHRONIC FATIGUE SYNDROME [None]
  - COAGULATION TIME PROLONGED [None]
  - COAGULOPATHY [None]
  - COLONIC POLYP [None]
  - CONFUSIONAL STATE [None]
  - CONTUSION [None]
  - DIARRHOEA [None]
  - DIVERTICULUM [None]
  - DYSPEPSIA [None]
  - EMOTIONAL DISTRESS [None]
  - EPISTAXIS [None]
  - FATIGUE [None]
  - GALLBLADDER DISORDER [None]
  - GASTROENTERITIS VIRAL [None]
  - HAEMORRHOIDS [None]
  - HYPOAESTHESIA [None]
  - INJURY [None]
  - INTERNATIONAL NORMALISED RATIO DECREASED [None]
  - INTERNATIONAL NORMALISED RATIO INCREASED [None]
  - IRRITABILITY [None]
  - LUMBAR RADICULOPATHY [None]
  - MENORRHAGIA [None]
  - MIGRAINE [None]
  - MIGRAINE WITH AURA [None]
  - MITRAL VALVE INCOMPETENCE [None]
  - NERVOUSNESS [None]
  - NEUROGENIC BLADDER [None]
  - OVARIAN CYST [None]
  - PROTEIN S INCREASED [None]
  - TRANSIENT ISCHAEMIC ATTACK [None]
  - TRICUSPID VALVE INCOMPETENCE [None]
  - URINARY TRACT INFECTION [None]
  - VAGINAL PAIN [None]
  - VISION BLURRED [None]
